FAERS Safety Report 18218061 (Version 1)
Quarter: 2020Q3

REPORT INFORMATION
  Report Type: Spontaneous
  Country: US (occurrence: US)
  Receive Date: 20200901
  Receipt Date: 20200901
  Transmission Date: 20201103
  Serious: Yes (Hospitalization, Other)
  Sender: FDA-Public Use
  Company Number: US-SA-2020SA224280

PATIENT

DRUGS (10)
  1. CARBOPLATIN. [Suspect]
     Active Substance: CARBOPLATIN
     Indication: PROSTATE CANCER METASTATIC
     Dosage: UNK, QCY
     Route: 042
     Dates: start: 20200608, end: 20200608
  2. PREDNISONE. [Suspect]
     Active Substance: PREDNISONE
     Dosage: 1 DF, BID
     Route: 048
     Dates: start: 20200608
  3. CABAZITAXEL [Suspect]
     Active Substance: CABAZITAXEL
     Dosage: 15 MG/M2, Q3W
     Route: 042
     Dates: start: 20200813, end: 20200813
  4. CARBOPLATIN. [Suspect]
     Active Substance: CARBOPLATIN
     Dosage: 3 AUC
     Route: 042
     Dates: start: 20200813, end: 20200813
  5. CABAZITAXEL [Suspect]
     Active Substance: CABAZITAXEL
     Indication: PROSTATE CANCER METASTATIC
     Dosage: 15 MG/M2, QCY
     Route: 042
     Dates: start: 20200606, end: 20200606
  6. IOPAMIDOL [Concomitant]
     Active Substance: IOPAMIDOL
     Dosage: 118 ML, 1X
     Route: 042
     Dates: start: 20200819
  7. SODIUM CHLORIDE 0.9% [Concomitant]
     Active Substance: SODIUM CHLORIDE
     Dosage: 79 ML, 1X
     Route: 042
     Dates: start: 20200819
  8. COZAAR [Concomitant]
     Active Substance: LOSARTAN POTASSIUM
     Dosage: 1 DF, QD
     Route: 048
  9. ASPIRIN [ACETYLSALICYLIC ACID] [Concomitant]
     Active Substance: ASPIRIN
     Indication: PERIPHERAL ARTERIAL OCCLUSIVE DISEASE
  10. PRILOSEC [Concomitant]
     Active Substance: OMEPRAZOLE MAGNESIUM
     Dosage: 1 DF, QD
     Route: 048

REACTIONS (12)
  - Rectal haemorrhage [Unknown]
  - Shock haemorrhagic [Unknown]
  - Diverticulitis [Unknown]
  - Flank pain [Unknown]
  - Umbilical hernia [Unknown]
  - Haematochezia [Unknown]
  - Pyrexia [Unknown]
  - Dizziness [Unknown]
  - Abdominal pain [Unknown]
  - Abdominal tenderness [Unknown]
  - Lower gastrointestinal haemorrhage [Unknown]
  - Polypectomy [Unknown]

NARRATIVE: CASE EVENT DATE: 2020
